FAERS Safety Report 5175305-X (Version None)
Quarter: 2006Q4

REPORT INFORMATION
  Report Type: 
  Country: None (occurrence: None)
  Receive Date: 20061211
  Receipt Date: 20061211
  Transmission Date: 20070319
  Serious: Yes (Death)
  Sender: FDA-Public Use
  Company Number: None

PATIENT
  Sex: Male

DRUGS (4)
  1. EFFEXOR [Suspect]
     Indication: ANXIETY
     Dates: start: 20040601, end: 20040921
  2. EFFEXOR [Suspect]
     Indication: DEPRESSION
     Dates: start: 20040601, end: 20040921
  3. EFFEXOR [Suspect]
     Indication: ANXIETY
     Dates: start: 20040601, end: 20040921
  4. EFFEXOR [Suspect]
     Indication: DEPRESSION
     Dates: start: 20040601, end: 20040921

REACTIONS (1)
  - COMPLETED SUICIDE [None]
